FAERS Safety Report 22317407 (Version 2)
Quarter: 2023Q2

REPORT INFORMATION
  Report Type: Spontaneous
  Country: SK (occurrence: SK)
  Receive Date: 20230515
  Receipt Date: 20230529
  Transmission Date: 20230722
  Serious: Yes (Other)
  Sender: FDA-Public Use
  Company Number: None

PATIENT
  Age: 47 Year
  Sex: Male

DRUGS (13)
  1. IMATINIB [Suspect]
     Active Substance: IMATINIB
     Indication: Graft versus host disease
     Dosage: 200 MG
     Route: 065
     Dates: start: 20210601
  2. IMATINIB [Suspect]
     Active Substance: IMATINIB
     Dosage: 100 MG, QD
     Route: 048
     Dates: start: 20210514, end: 20210531
  3. IMATINIB [Suspect]
     Active Substance: IMATINIB
     Dosage: 300 MG
     Route: 065
     Dates: start: 20220513, end: 202206
  4. IMATINIB [Suspect]
     Active Substance: IMATINIB
     Dosage: 200 MG
     Route: 065
     Dates: start: 20210531
  5. CYCLOSPORINE [Concomitant]
     Active Substance: CYCLOSPORINE
     Indication: Product used for unknown indication
     Dosage: 100 MG
     Route: 065
  6. PREDNISONE [Concomitant]
     Active Substance: PREDNISONE
     Indication: Graft versus host disease
     Dosage: 20 MG
     Route: 065
  7. PREDNISONE [Concomitant]
     Active Substance: PREDNISONE
     Dosage: 60 MG
     Route: 065
     Dates: start: 20200715
  8. PREDNISONE [Concomitant]
     Active Substance: PREDNISONE
     Route: 065
  9. PREDNISONE [Concomitant]
     Active Substance: PREDNISONE
     Route: 065
  10. MYCOPHENOLATE MOFETIL [Concomitant]
     Active Substance: MYCOPHENOLATE MOFETIL
     Indication: Graft versus host disease
     Dosage: UNK
     Route: 065
  11. CYCLOSPORINE [Concomitant]
     Active Substance: CYCLOSPORINE
     Indication: Graft versus host disease
     Dosage: 100 MG
     Route: 065
  12. CYCLOSPORINE [Concomitant]
     Active Substance: CYCLOSPORINE
     Dosage: 25 MG
     Route: 065
  13. CYCLOSPORINE [Concomitant]
     Active Substance: CYCLOSPORINE
     Dosage: 250 MG
     Route: 065

REACTIONS (6)
  - Bronchiolitis obliterans syndrome [Recovering/Resolving]
  - Organising pneumonia [Unknown]
  - Productive cough [Unknown]
  - Cough [Unknown]
  - Dyspnoea [Unknown]
  - Drug ineffective for unapproved indication [Unknown]

NARRATIVE: CASE EVENT DATE: 20211014
